FAERS Safety Report 6455273-0 (Version None)
Quarter: 2009Q4

REPORT INFORMATION
  Report Type: 
  Country: None (occurrence: None)
  Receive Date: 20091119
  Receipt Date: 20091105
  Transmission Date: 20100525
  Serious: Yes (Other)
  Sender: FDA-Public Use
  Company Number: 2009JP006200

PATIENT
  Age: 35 Year
  Sex: Male

DRUGS (8)
  1. PROGRAF [Suspect]
     Indication: CORD BLOOD TRANSPLANT THERAPY
     Dosage: 0.2 MG, BID, ORAL, ORAL
     Route: 048
     Dates: start: 20060704, end: 20060827
  2. THALIDOMIDE [Concomitant]
  3. PREDNISOLONE [Concomitant]
  4. BISOPROLOL (BISOPROLOL HEMIFUMARATE) [Concomitant]
  5. TRIMETHOPRIM + SULFAMETHOXAZOLE [Concomitant]
  6. FLUCONAZOLE [Concomitant]
  7. GANCICLOVIR [Concomitant]
  8. CEFOPERAZIN (CEFOPERAZONE SODIUM) [Concomitant]

REACTIONS (2)
  - CYTOMEGALOVIRUS INFECTION [None]
  - THROMBOTIC MICROANGIOPATHY [None]
